FAERS Safety Report 12676158 (Version 1)
Quarter: 2016Q3

REPORT INFORMATION
  Report Type: Spontaneous
  Country: IN (occurrence: IN)
  Receive Date: 20160823
  Receipt Date: 20160823
  Transmission Date: 20161109
  Serious: Yes (Other)
  Sender: FDA-Public Use
  Company Number: PHHY2016IN114959

PATIENT
  Age: 58 Year
  Sex: Female

DRUGS (2)
  1. IMATINIB [Suspect]
     Active Substance: IMATINIB
     Indication: CHRONIC MYELOID LEUKAEMIA
     Dosage: 400 MG, QD
     Route: 065
     Dates: start: 200408
  2. FOLIC ACID. [Concomitant]
     Active Substance: FOLIC ACID
     Indication: CHRONIC MYELOID LEUKAEMIA
     Dosage: 5 MG, QD
     Route: 065
     Dates: start: 200408

REACTIONS (3)
  - Autoimmune thyroiditis [Recovered/Resolved]
  - Thyroid pain [Recovered/Resolved]
  - Tenderness [Recovered/Resolved]
